FAERS Safety Report 5499503-0 (Version None)
Quarter: 2007Q4

REPORT INFORMATION
  Report Type: 
  Country: None (occurrence: None)
  Receive Date: 20071026
  Receipt Date: 20071018
  Transmission Date: 20080405
  Serious: Yes (Hospitalization)
  Sender: FDA-Public Use
  Company Number: SE-JNJFOC-20071004777

PATIENT
  Age: 39 Year
  Sex: Male

DRUGS (5)
  1. CONCERTA [Suspect]
     Route: 048
  2. CONCERTA [Suspect]
     Indication: ATTENTION DEFICIT/HYPERACTIVITY DISORDER
     Route: 048
  3. LEVOTHYROXINE SODIUM [Concomitant]
     Route: 048
  4. CISORDINOL [Concomitant]
  5. ZYPREXA [Concomitant]

REACTIONS (4)
  - AGGRESSION [None]
  - INTENTIONAL DRUG MISUSE [None]
  - MANIA [None]
  - PSYCHOTIC DISORDER [None]
